FAERS Safety Report 18204167 (Version 2)
Quarter: 2020Q3

REPORT INFORMATION
  Report Type: Report from Study
  Country: None (occurrence: US)
  Receive Date: 20200828
  Receipt Date: 20200926
  Transmission Date: 20201103
  Serious: Yes (Hospitalization)
  Sender: FDA-Public Use
  Company Number: US-ABBVIE-20K-163-3473138-00

PATIENT
  Sex: Female

DRUGS (3)
  1. HUMIRA [Suspect]
     Active Substance: ADALIMUMAB
     Indication: CROHN^S DISEASE
     Route: 058
     Dates: start: 20200716
  2. HUMIRA [Suspect]
     Active Substance: ADALIMUMAB
     Dosage: DAY 15
     Route: 058
     Dates: start: 20200616, end: 20200616
  3. HUMIRA [Suspect]
     Active Substance: ADALIMUMAB
     Indication: CROHN^S DISEASE
     Dosage: DAY 1
     Route: 058
     Dates: start: 20200602, end: 20200602

REACTIONS (13)
  - Chills [Unknown]
  - Abdominal distension [Unknown]
  - Visual impairment [Unknown]
  - Menopause [Unknown]
  - Alopecia [Unknown]
  - Obstruction [Unknown]
  - Constipation [Unknown]
  - Fatigue [Unknown]
  - Diarrhoea [Unknown]
  - Hyperhidrosis [Unknown]
  - Headache [Unknown]
  - Paraesthesia [Unknown]
  - Abdominal pain [Unknown]

NARRATIVE: CASE EVENT DATE: 2020
